FAERS Safety Report 8990005 (Version 4)
Quarter: 2013Q1

REPORT INFORMATION
  Report Type: Report from Study
  Country: US (occurrence: US)
  Receive Date: 20121228
  Receipt Date: 20130130
  Transmission Date: 20140127
  Serious: Yes (Hospitalization)
  Sender: FDA-Public Use
  Company Number: US-ACTELION-A-NJ2012-76341

PATIENT
  Age: 76 Year
  Sex: Female

DRUGS (4)
  1. TRACLEER [Suspect]
     Indication: PULMONARY ARTERIAL HYPERTENSION
     Dosage: UNK
     Route: 048
     Dates: start: 20090903, end: 2012
  2. TRACLEER [Suspect]
     Dosage: UNK
     Route: 048
     Dates: start: 2012
  3. VENTAVIS [Suspect]
     Indication: PULMONARY ARTERIAL HYPERTENSION
     Dosage: UNK
     Route: 055
  4. COUMADIN [Concomitant]

REACTIONS (6)
  - Influenza [Unknown]
  - Influenza like illness [Unknown]
  - Dehydration [Unknown]
  - Blood potassium decreased [Unknown]
  - Gastroenteritis viral [Unknown]
  - Liver function test abnormal [Unknown]
